FAERS Safety Report 6202652-2 (Version None)
Quarter: 2009Q2

REPORT INFORMATION
  Report Type: 
  Country: None (occurrence: None)
  Receive Date: 20090526
  Receipt Date: 20090519
  Transmission Date: 20091009
  Serious: Yes (Hospitalization)
  Sender: FDA-Public Use
  Company Number: US-ASTRAZENECA-2009UW12730

PATIENT
  Age: 937 Month
  Sex: Male
  Weight: 86.2 kg

DRUGS (10)
  1. NEXIUM [Suspect]
     Route: 048
  2. PRILOSEC OTC [Suspect]
     Route: 048
  3. CRESTOR [Suspect]
     Route: 048
  4. METFORMIN HCL [Concomitant]
  5. FUROSEMIDE [Concomitant]
  6. QUINAPRIL [Concomitant]
  7. METOPROLOL [Concomitant]
  8. AMLODIPINE [Concomitant]
  9. ASPIRIN [Concomitant]
  10. PLAVIX [Concomitant]

REACTIONS (2)
  - ANAEMIA [None]
  - FATIGUE [None]
